FAERS Safety Report 4928201-4 (Version None)
Quarter: 2006Q1

REPORT INFORMATION
  Report Type: 
  Country: None (occurrence: None)
  Receive Date: 20060223
  Receipt Date: 20060201
  Transmission Date: 20060701
  Serious: Yes (Other)
  Sender: FDA-Public Use
  Company Number: SE200602000625

PATIENT
  Age: 43 Year
  Sex: Male

DRUGS (3)
  1. CYMBALTA [Suspect]
     Indication: DEPRESSION
     Dosage: SEE IMAGE
     Route: 048
     Dates: start: 20050401, end: 20050506
  2. CYMBALTA [Suspect]
     Indication: DEPRESSION
     Dosage: SEE IMAGE
     Route: 048
     Dates: start: 20050426
  3. BRUFEN ^ABBOT^ (IBUPROFEN) TABLET [Concomitant]

REACTIONS (4)
  - EPIDIDYMAL DISORDER [None]
  - MICTURITION DISORDER [None]
  - SCROTAL PAIN [None]
  - URINARY RETENTION [None]
